FAERS Safety Report 13436094 (Version 1)
Quarter: 2017Q2

REPORT INFORMATION
  Report Type: Spontaneous
  Country: BR (occurrence: BR)
  Receive Date: 20170413
  Receipt Date: 20170413
  Transmission Date: 20170830
  Serious: Yes (Other)
  Sender: FDA-Public Use
  Company Number: BR-NOVOPROD-540225

PATIENT
  Sex: Female

DRUGS (1)
  1. INSULATARD HM [Suspect]
     Active Substance: INSULIN HUMAN
     Indication: DIABETES MELLITUS
     Dosage: 50 IU
     Route: 065

REACTIONS (2)
  - Renal impairment [Unknown]
  - Diabetes mellitus inadequate control [Recovered/Resolved]
